FAERS Safety Report 24808136 (Version 1)
Quarter: 2025Q1

REPORT INFORMATION
  Report Type: Spontaneous
  Country: IN (occurrence: IN)
  Receive Date: 20250106
  Receipt Date: 20250106
  Transmission Date: 20250409
  Serious: Yes (Other)
  Sender: STRIDES
  Company Number: None

PATIENT
  Age: 80 Year
  Sex: Female

DRUGS (18)
  1. ISOSORBIDE MONONITRATE [Interacting]
     Active Substance: ISOSORBIDE MONONITRATE
     Indication: Myocardial ischaemia
     Route: 065
  2. ISOSORBIDE MONONITRATE [Interacting]
     Active Substance: ISOSORBIDE MONONITRATE
     Indication: Chest pain
  3. TORSEMIDE [Interacting]
     Active Substance: TORSEMIDE
     Indication: Product used for unknown indication
     Route: 065
  4. ASPIRIN\ATORVASTATIN [Interacting]
     Active Substance: ASPIRIN\ATORVASTATIN
     Indication: Product used for unknown indication
     Route: 065
  5. IVABRADINE HYDROCHLORIDE [Interacting]
     Active Substance: IVABRADINE HYDROCHLORIDE
     Indication: Myocardial ischaemia
     Route: 065
  6. IVABRADINE HYDROCHLORIDE [Interacting]
     Active Substance: IVABRADINE HYDROCHLORIDE
     Indication: Chest pain
  7. ETOFYLLINE\THEOPHYLLINE [Interacting]
     Active Substance: ETOFYLLINE\THEOPHYLLINE
     Indication: Chronic obstructive pulmonary disease
     Route: 065
  8. CEFOPERAZONE SODIUM\SULBACTAM SODIUM [Interacting]
     Active Substance: CEFOPERAZONE SODIUM\SULBACTAM SODIUM
     Indication: Pneumonia
     Route: 065
  9. FLUCONAZOLE [Interacting]
     Active Substance: FLUCONAZOLE
     Indication: Oral candidiasis
     Route: 065
  10. Pantocid [Concomitant]
     Indication: Product used for unknown indication
     Route: 065
  11. CHOLINE SALICYLATE;LIDOCAINE [Concomitant]
     Indication: Mouth ulceration
     Route: 065
  12. MONTAIR PLUS [Concomitant]
     Indication: Chronic obstructive pulmonary disease
     Route: 065
  13. CREMAFFIN [Concomitant]
     Indication: Constipation
     Route: 065
  14. Livogen [Concomitant]
     Indication: Iron deficiency anaemia
     Route: 065
  15. DEXTROSE [Concomitant]
     Active Substance: DEXTROSE MONOHYDRATE
     Indication: Hypoglycaemia
     Route: 065
  16. INSULIN NOS [Concomitant]
     Active Substance: INSULIN NOS
     Indication: Diabetes mellitus
     Route: 065
  17. LEVOTHYROXINE [Concomitant]
     Active Substance: LEVOTHYROXINE
     Indication: Hypothyroidism
     Route: 065
  18. BUDESONIDE [Concomitant]
     Active Substance: BUDESONIDE
     Indication: Chronic obstructive pulmonary disease
     Route: 065

REACTIONS (4)
  - Oedema peripheral [Recovered/Resolved]
  - Drug interaction [Not Recovered/Not Resolved]
  - Hypotension [Not Recovered/Not Resolved]
  - Off label use [Unknown]
